FAERS Safety Report 9524445 (Version 2)
Quarter: 2013Q4

REPORT INFORMATION
  Report Type: Spontaneous
  Country: US (occurrence: US)
  Receive Date: 20130916
  Receipt Date: 20131220
  Transmission Date: 20140711
  Serious: No
  Sender: FDA-Public Use
  Company Number: US-PFIZER INC-2013260132

PATIENT
  Age: 51 Year
  Sex: Female
  Weight: 127 kg

DRUGS (4)
  1. VIAGRA [Suspect]
     Indication: NON-CONSUMMATION
     Dosage: 25 MG, 2X/DAY
  2. VIAGRA [Suspect]
     Indication: ERECTILE DYSFUNCTION
     Dosage: 25 MG, 3X/WEEK
     Route: 048
  3. VIAGRA [Suspect]
     Dosage: 6 TABLETS OF 25MG ONCE
     Route: 048
     Dates: start: 201311, end: 201311
  4. METFORMIN [Concomitant]
     Dosage: 1000 MG, 1X/DAY

REACTIONS (2)
  - Incorrect dose administered [Unknown]
  - Drug ineffective [Unknown]
